FAERS Safety Report 5307952-6 (Version None)
Quarter: 2007Q2

REPORT INFORMATION
  Report Type: 
  Country: None (occurrence: None)
  Receive Date: 20070426
  Receipt Date: 20070412
  Transmission Date: 20071010
  Serious: Yes (Hospitalization)
  Sender: FDA-Public Use
  Company Number: 2007AP01930

PATIENT
  Age: 57 Year
  Sex: Male

DRUGS (6)
  1. IRESSA [Suspect]
     Indication: NON-SMALL CELL LUNG CANCER
     Route: 048
     Dates: start: 20070219, end: 20070301
  2. IRESSA [Suspect]
     Route: 048
     Dates: start: 20070308, end: 20070312
  3. GEMCITABINE HCL [Concomitant]
  4. CARBOPLATIN [Concomitant]
  5. TAXOTERE [Concomitant]
  6. VINORELBINE [Concomitant]

REACTIONS (2)
  - DYSPNOEA [None]
  - RESPIRATORY FAILURE [None]
